FAERS Safety Report 7141588-X (Version None)
Quarter: 2010Q4

REPORT INFORMATION
  Report Type: 
  Country: None (occurrence: None)
  Receive Date: 20101117
  Receipt Date: 20100719
  Transmission Date: 20110411
  Serious: Yes (Hospitalization)
  Sender: FDA-Public Use
  Company Number: WAES 1006USA03001

PATIENT

DRUGS (1)
  1. ISENTRESS [Suspect]
     Dosage: PO
     Route: 048

REACTIONS (2)
  - ADVERSE EVENT [None]
  - WRONG TECHNIQUE IN DRUG USAGE PROCESS [None]
